FAERS Safety Report 4637266-9 (Version None)
Quarter: 2005Q2

REPORT INFORMATION
  Report Type: 
  Country: None (occurrence: None)
  Receive Date: 20050418
  Receipt Date: 20050407
  Transmission Date: 20051028
  Serious: Yes (Hospitalization)
  Sender: FDA-Public Use
  Company Number: FR-JNJFOC-20050401900

PATIENT
  Age: 82 Year
  Sex: Male

DRUGS (7)
  1. REMICADE [Suspect]
     Route: 042
  2. REMICADE [Suspect]
     Indication: RHEUMATOID VASCULITIS
     Route: 042
  3. CORTANCYL [Concomitant]
  4. KARDEGIC [Concomitant]
  5. MOPRAL [Concomitant]
  6. CHRONADALATE [Concomitant]
  7. METHOTREXATE [Concomitant]

REACTIONS (4)
  - ADENOCARCINOMA [None]
  - ARTHRALGIA [None]
  - PROSTATE CANCER [None]
  - URINARY TRACT INFECTION [None]
